FAERS Safety Report 11216742 (Version 2)
Quarter: 2015Q3

REPORT INFORMATION
  Report Type: Spontaneous
  Country: IT (occurrence: IT)
  Receive Date: 20150624
  Receipt Date: 20150714
  Transmission Date: 20151125
  Serious: Yes (Hospitalization)
  Sender: FDA-Public Use
  Company Number: IT-EMD SERONO-8030683

PATIENT
  Age: 26 Year
  Sex: Male

DRUGS (2)
  1. XATRAL [Concomitant]
     Active Substance: ALFUZOSIN
     Indication: URINARY TRACT DISORDER
     Dates: start: 201105
  2. REBIF [Suspect]
     Active Substance: INTERFERON BETA-1A
     Indication: RELAPSING-REMITTING MULTIPLE SCLEROSIS
     Dosage: AMPOULE
     Route: 058
     Dates: start: 20111212, end: 20150108

REACTIONS (1)
  - Hodgkin^s disease nodular sclerosis [Not Recovered/Not Resolved]

NARRATIVE: CASE EVENT DATE: 20150105
